FAERS Safety Report 5262306-6 (Version None)
Quarter: 2007Q1

REPORT INFORMATION
  Report Type: 
  Country: None (occurrence: None)
  Receive Date: 20070308
  Receipt Date: 20070223
  Transmission Date: 20070707
  Serious: Yes (Hospitalization)
  Sender: FDA-Public Use
  Company Number: 2006RR-03215

PATIENT
  Age: 64 Year
  Sex: Male

DRUGS (6)
  1. AMOXICILLIN AND CLAVULANATE POTASSIUM [Suspect]
     Dosage: 625 MG, TID, ORAL
     Route: 048
     Dates: start: 20060606, end: 20060610
  2. ENALAPRIL MALEATE [Concomitant]
  3. ESOMEPRAZOLE MAGNESIUM [Concomitant]
  4. MELOXICAM [Concomitant]
  5. NEORAL [Concomitant]
  6. QUININE [Concomitant]

REACTIONS (2)
  - JAUNDICE [None]
  - LIVER FUNCTION TEST ABNORMAL [None]
